FAERS Safety Report 15525424 (Version 2)
Quarter: 2018Q4

REPORT INFORMATION
  Report Type: Spontaneous
  Country: DE (occurrence: DE)
  Receive Date: 20181018
  Receipt Date: 20181219
  Transmission Date: 20190205
  Serious: Yes (Hospitalization, Other)
  Sender: FDA-Public Use
  Company Number: PHHY2018DE125406

PATIENT
  Sex: Female
  Weight: 66 kg

DRUGS (4)
  1. GILENYA [Suspect]
     Active Substance: FINGOLIMOD HYDROCHLORIDE
     Indication: MULTIPLE SCLEROSIS
     Dosage: 0.5 MG, QD
     Route: 065
     Dates: start: 20180703, end: 20180727
  2. SOLIFENACINE [Concomitant]
     Indication: MULTIPLE SCLEROSIS
     Dosage: 10 MG, QD
     Route: 065
  3. BACLOFEN. [Concomitant]
     Active Substance: BACLOFEN
     Indication: MULTIPLE SCLEROSIS
     Dosage: UNK UNK, BID
     Route: 065
  4. FAMPRIDINE [Concomitant]
     Active Substance: DALFAMPRIDINE
     Indication: MULTIPLE SCLEROSIS
     Dosage: 10 MG, BID
     Route: 065

REACTIONS (3)
  - Epstein-Barr virus infection [Recovered/Resolved]
  - Encephalitis [Recovered/Resolved]
  - Lymphopenia [Recovered/Resolved]

NARRATIVE: CASE EVENT DATE: 2018
